FAERS Safety Report 11190559 (Version 3)
Quarter: 2015Q3

REPORT INFORMATION
  Report Type: Report from Study
  Country: GB (occurrence: GB)
  Receive Date: 20150615
  Receipt Date: 20150708
  Transmission Date: 20151125
  Serious: Yes (Hospitalization)
  Sender: FDA-Public Use
  Company Number: GB-GLAXOSMITHKLINE INC.-GB2015GSK081187

PATIENT
  Age: 59 Year
  Sex: Male
  Weight: 95.6 kg

DRUGS (13)
  1. DIFFLAM [Concomitant]
     Active Substance: BENZYDAMINE HYDROCHLORIDE
     Indication: MOUTH ULCERATION
     Dosage: UNK
     Dates: start: 20150302
  2. HYDROCORTISONE. [Concomitant]
     Active Substance: HYDROCORTISONE
     Indication: RASH
     Dosage: UNK
     Dates: start: 20150421
  3. PACLITAXEL. [Suspect]
     Active Substance: PACLITAXEL
     Indication: MALIGNANT MELANOMA
     Dosage: 80 MG/M2, CYC
     Route: 042
     Dates: start: 20150127, end: 20150520
  4. CYCLIZINE [Concomitant]
     Active Substance: CYCLIZINE
     Indication: NAUSEA
     Dosage: 50 MG, TID
     Route: 048
     Dates: start: 20141204
  5. FENTANYL. [Concomitant]
     Active Substance: FENTANYL
     Indication: PAIN
     Dosage: UNK
     Dates: start: 20141204
  6. E45 [Concomitant]
     Active Substance: LANOLIN\LIGHT MINERAL OIL\PARAFFIN
     Indication: RASH
     Dosage: UNK
     Dates: start: 20150226
  7. CALCICHEW [Concomitant]
     Active Substance: CALCIUM CARBONATE
     Dosage: UNK
     Dates: start: 20150210
  8. TRAMETINIB [Suspect]
     Active Substance: TRAMETINIB
     Indication: MALIGNANT MELANOMA
     Dosage: 2 MG, QD
     Route: 048
     Dates: start: 20150127, end: 20150530
  9. DEXAMETHASONE. [Concomitant]
     Active Substance: DEXAMETHASONE
     Indication: DECREASED APPETITE
  10. FLUCLOXACILLIN [Concomitant]
     Active Substance: FLUCLOXACILLIN
     Indication: CYST
     Dosage: UNK
     Dates: start: 20150520
  11. DOXYCYCLINE. [Concomitant]
     Active Substance: DOXYCYCLINE
  12. OXYCODONE [Concomitant]
     Active Substance: OXYCODONE
     Indication: PAIN
     Dosage: 5 MG, PRN
     Route: 048
     Dates: start: 20141204
  13. LEVOTHYROXINE. [Concomitant]
     Active Substance: LEVOTHYROXINE
     Indication: THYROIDECTOMY
     Dosage: 200 UG, QD
     Route: 048
     Dates: start: 20090626

REACTIONS (1)
  - Abscess [Recovered/Resolved with Sequelae]

NARRATIVE: CASE EVENT DATE: 20150529
